FAERS Safety Report 16071055 (Version 1)
Quarter: 2019Q1

REPORT INFORMATION
  Report Type: Spontaneous
  Country: US (occurrence: US)
  Receive Date: 20190314
  Receipt Date: 20190314
  Transmission Date: 20190418
  Serious: No
  Sender: FDA-Public Use
  Company Number: US-PFIZER INC-2019096157

PATIENT
  Age: 87 Year
  Sex: Female

DRUGS (2)
  1. ADVIL [Suspect]
     Active Substance: IBUPROFEN
     Dosage: 1 DF, 1X/DAY (1 TABLET PER DAY/ ON AND OFF SINCE DEC)
  2. ASPIRINE [Concomitant]
     Active Substance: ASPIRIN
     Dosage: UNK, ALTERNATE DAY (1 ASPIRIN EVERY OTHER NIGHT)

REACTIONS (1)
  - Drug effect delayed [Unknown]
